FAERS Safety Report 10008369 (Version 2)
Quarter: 2014Q1

REPORT INFORMATION
  Report Type: Spontaneous
  Country: US (occurrence: US)
  Receive Date: 20140313
  Receipt Date: 20140313
  Transmission Date: 20141002
  Serious: No
  Sender: FDA-Public Use
  Company Number: US-GILEAD-2013-0074855

PATIENT
  Age: 5 Year
  Sex: Female
  Weight: 25 kg

DRUGS (6)
  1. LETAIRIS [Suspect]
     Indication: PULMONARY ARTERIAL HYPERTENSION
     Dosage: 2.5 MG, QD
     Dates: start: 20120830
  2. LETAIRIS [Suspect]
     Dosage: 1.25 MG, QD
     Route: 048
     Dates: end: 20130407
  3. REMODULIN [Concomitant]
     Indication: PULMONARY HYPERTENSION
     Dosage: 137 DF, UNK
     Route: 042
     Dates: start: 20110526
  4. ADCIRCA [Concomitant]
     Indication: PULMONARY HYPERTENSION
     Dosage: 20 MG, UNK
     Route: 048
     Dates: start: 201102
  5. WARFARIN [Concomitant]
     Indication: PULMONARY HYPERTENSION
     Dosage: 6 MG, UNK
     Route: 048
     Dates: start: 201111
  6. OXYGEN [Concomitant]
     Dosage: 0.5 L, UNK
     Dates: start: 201105

REACTIONS (3)
  - Oedema [Recovering/Resolving]
  - Dizziness [Recovering/Resolving]
  - Asthenia [Recovering/Resolving]
